FAERS Safety Report 6474766-3 (Version None)
Quarter: 2009Q4

REPORT INFORMATION
  Report Type: 
  Country: None (occurrence: None)
  Receive Date: 20091204
  Receipt Date: 20090302
  Transmission Date: 20100525
  Serious: Yes (Death, Other)
  Sender: FDA-Public Use
  Company Number: JP-ELI_LILLY_AND_COMPANY-JP200902001188

PATIENT
  Sex: Female
  Weight: 48 kg

DRUGS (12)
  1. GEMZAR [Suspect]
     Indication: PANCREATIC CARCINOMA STAGE IV
     Dosage: 1000 MG, OTHER
     Route: 042
     Dates: start: 20080509, end: 20080516
  2. GEMZAR [Suspect]
     Dosage: 800 MG, OTHER
     Route: 042
     Dates: start: 20080530, end: 20080606
  3. GEMZAR [Suspect]
     Dosage: 600 MG, OTHER
     Route: 042
     Dates: start: 20080620, end: 20080704
  4. GEMZAR [Suspect]
     Dosage: 600 MG, OTHER
     Route: 042
     Dates: start: 20080725, end: 20081107
  5. PARIET /JPN/ [Concomitant]
     Indication: PROPHYLAXIS AGAINST GASTROINTESTINAL ULCER
     Dosage: 10 MG, DAILY (1/D)
     Route: 048
     Dates: start: 20080515, end: 20080713
  6. PARIET /JPN/ [Concomitant]
     Dosage: 10 MG, 2/D
     Route: 048
     Dates: start: 20080714, end: 20090106
  7. MAGMITT [Concomitant]
     Indication: CONSTIPATION
     Dosage: 333 MG, 3/D
     Route: 048
     Dates: start: 20080430, end: 20090106
  8. DUROTEP [Concomitant]
     Indication: CANCER PAIN
     Dosage: 2.5 MG, OTHER
     Route: 062
     Dates: start: 20080507, end: 20090106
  9. GASMOTIN [Concomitant]
     Indication: PROPHYLAXIS AGAINST GASTROINTESTINAL ULCER
     Dosage: 5 MG, 3/D
     Route: 048
     Dates: start: 20080515, end: 20090106
  10. RINDERON /00008501/ [Concomitant]
     Indication: CANCER PAIN
     Dosage: 2 MG, DAILY (1/D)
     Route: 048
     Dates: start: 20080521, end: 20090106
  11. CALONAL [Concomitant]
     Indication: CANCER PAIN
     Dosage: 200 MG, 4/D
     Route: 048
     Dates: start: 20080715, end: 20090106
  12. LASIX [Concomitant]
     Indication: OEDEMA
     Dosage: 40 MG, DAILY (1/D)
     Route: 048
     Dates: start: 20090105, end: 20090106

REACTIONS (6)
  - DISSEMINATED INTRAVASCULAR COAGULATION [None]
  - GASTRIC ULCER HAEMORRHAGE [None]
  - METASTASES TO LIVER [None]
  - PLATELET COUNT DECREASED [None]
  - SHOCK HAEMORRHAGIC [None]
  - WHITE BLOOD CELL COUNT DECREASED [None]
